FAERS Safety Report 14417034 (Version 9)
Quarter: 2022Q4

REPORT INFORMATION
  Report Type: Spontaneous
  Country: US (occurrence: US)
  Receive Date: 20180122
  Receipt Date: 20221107
  Transmission Date: 20230113
  Serious: No
  Sender: FDA-Public Use
  Company Number: US-PFIZER INC-2018024662

PATIENT
  Age: 67 Year
  Sex: Female

DRUGS (4)
  1. ENBREL [Suspect]
     Active Substance: ETANERCEPT
     Dosage: UNK
  2. MORPHINE SULFATE [Suspect]
     Active Substance: MORPHINE SULFATE
     Dosage: UNK
  3. MOBIC [Suspect]
     Active Substance: MELOXICAM
     Dosage: UNK
  4. IODINE [Suspect]
     Active Substance: IODINE
     Dosage: UNK

REACTIONS (1)
  - Drug hypersensitivity [Unknown]
